FAERS Safety Report 16445297 (Version 1)
Quarter: 2019Q2

REPORT INFORMATION
  Report Type: Spontaneous
  Country: US (occurrence: US)
  Receive Date: 20190508
  Receipt Date: 20190508
  Transmission Date: 20190711
  Serious: No
  Sender: FDA-Public Use
  Company Number: None

PATIENT
  Age: 36 Year
  Sex: Male

DRUGS (1)
  1. TALTZ [Suspect]
     Active Substance: IXEKIZUMAB
     Dosage: ?          OTHER FREQUENCY:UNKNOWN;?
     Route: 058
     Dates: start: 20190301

REACTIONS (6)
  - Diarrhoea [None]
  - Therapy cessation [None]
  - Injection site pain [None]
  - Gastrointestinal disorder [None]
  - Vomiting [None]
  - Injection site swelling [None]

NARRATIVE: CASE EVENT DATE: 20190301
